FAERS Safety Report 17646717 (Version 2)
Quarter: 2020Q2

REPORT INFORMATION
  Report Type: Spontaneous
  Country: AT (occurrence: AT)
  Receive Date: 20200408
  Receipt Date: 20200515
  Transmission Date: 20200713
  Serious: Yes (Other)
  Sender: FDA-Public Use
  Company Number: AT-STALLERGENES SAS-2082526

PATIENT
  Age: 44 Year
  Sex: Female

DRUGS (3)
  1. STALORAL SUBLINGUAL SOLUTION (BIRCH, ALDER, HAZEL-TREE) [Suspect]
     Active Substance: ALLERGENIC EXTRACTS
     Route: 060
     Dates: start: 20190201, end: 20200326
  2. ORALAIR [Suspect]
     Active Substance: ANTHOXANTHUM ODORATUM POLLEN\DACTYLIS GLOMERATA POLLEN\LOLIUM PERENNE POLLEN\PHLEUM PRATENSE POLLEN\POA PRATENSIS POLLEN
     Route: 060
     Dates: end: 20200326
  3. ORALAIR [Suspect]
     Active Substance: ANTHOXANTHUM ODORATUM POLLEN\DACTYLIS GLOMERATA POLLEN\LOLIUM PERENNE POLLEN\PHLEUM PRATENSE POLLEN\POA PRATENSIS POLLEN
     Indication: CONJUNCTIVITIS ALLERGIC
     Route: 060
     Dates: start: 20190201

REACTIONS (6)
  - Reactive gastropathy [Unknown]
  - Eosinophilic oesophagitis [Unknown]
  - Nausea [Unknown]
  - Gastritis [Unknown]
  - Abdominal pain upper [Unknown]
  - Eosinophil count increased [Unknown]

NARRATIVE: CASE EVENT DATE: 202001
